FAERS Safety Report 7248391-0 (Version None)
Quarter: 2011Q1

REPORT INFORMATION
  Report Type: 
  Country: None (occurrence: None)
  Receive Date: 20110127
  Receipt Date: 20110117
  Transmission Date: 20110831
  Serious: Yes (Death, Life-Threatening, Hospitalization)
  Sender: FDA-Public Use
  Company Number: US-ELI_LILLY_AND_COMPANY-US201101004103

PATIENT
  Sex: Female

DRUGS (12)
  1. ASA [Concomitant]
     Dosage: 175 MG, DAILY (1/D)
  2. LASIX [Concomitant]
     Dosage: 40 MG, DAILY (1/D)
  3. SIMVASTATIN [Concomitant]
     Dosage: 40 MG, DAILY (1/D)
  4. OXYBUTYNIN [Concomitant]
     Dosage: 5 MG, DAILY (1/D)
  5. GLIMEPIRIDE [Concomitant]
     Dosage: 4 MG, 2/D
  6. LISINOPRIL [Concomitant]
     Dosage: 40 MG, DAILY (1/D)
  7. POTASSIUM CHLORIDE [Concomitant]
     Dosage: 1 D/F, UNK
  8. EFFIENT [Suspect]
     Indication: STENT PLACEMENT
     Dosage: 60 MG, UNK
     Dates: start: 20101213
  9. TENEX [Concomitant]
     Dosage: 1 D/F, EACH EVENING
  10. COREG [Concomitant]
     Dosage: 6.25 MG, 2/D
  11. MULTI-VITAMIN [Concomitant]
     Dosage: UNK, DAILY (1/D)
  12. LOVENOX [Concomitant]

REACTIONS (3)
  - RETROPERITONEAL HAEMORRHAGE [None]
  - MULTI-ORGAN FAILURE [None]
  - CARDIAC ARREST [None]
